FAERS Safety Report 18695467 (Version 2)
Quarter: 2021Q1

REPORT INFORMATION
  Report Type: Spontaneous
  Country: US (occurrence: US)
  Receive Date: 20210104
  Receipt Date: 20210108
  Transmission Date: 20210419
  Serious: Yes (Other)
  Sender: FDA-Public Use
  Company Number: US-PFIZER INC-2020513109

PATIENT
  Age: 67 Year
  Sex: Female

DRUGS (5)
  1. TEMOZOLOMIDE. [Concomitant]
     Active Substance: TEMOZOLOMIDE
     Indication: DIFFUSE LARGE B-CELL LYMPHOMA
     Dosage: 150 MG/M2
  2. DEXAMETHASONE. [Concomitant]
     Active Substance: DEXAMETHASONE
     Indication: VASOGENIC CEREBRAL OEDEMA
     Dosage: UNK
  3. METHOTREXATE SODIUM. [Suspect]
     Active Substance: METHOTREXATE SODIUM
     Indication: DIFFUSE LARGE B-CELL LYMPHOMA
     Dosage: 4271 MG/M2 (HIGH DOSE, ADJUSTED AS A ?50% REDUCTION BASED ON A 24H CRCL OF 47ML/MIN)
  4. LEVETIRACETAM. [Interacting]
     Active Substance: LEVETIRACETAM
     Indication: VASOGENIC CEREBRAL OEDEMA
     Dosage: UNK
  5. RITUXIMAB. [Concomitant]
     Active Substance: RITUXIMAB
     Indication: DIFFUSE LARGE B-CELL LYMPHOMA
     Dosage: 500 MG/M2

REACTIONS (6)
  - Drug clearance decreased [Recovered/Resolved]
  - Drug interaction [Unknown]
  - Crystal nephropathy [Unknown]
  - Transaminases increased [Unknown]
  - Acute kidney injury [Unknown]
  - Toxicity to various agents [Unknown]
